FAERS Safety Report 20479415 (Version 2)
Quarter: 2022Q1

REPORT INFORMATION
  Report Type: Report from Study
  Country: CN (occurrence: None)
  Receive Date: 20220216
  Receipt Date: 20220331
  Transmission Date: 20220424
  Serious: Yes (Hospitalization)
  Sender: FDA-Public Use
  Company Number: CN-ROCHE-3024675

PATIENT
  Age: 65 Year
  Sex: Male
  Weight: 63 kg

DRUGS (32)
  1. ATEZOLIZUMAB [Suspect]
     Active Substance: ATEZOLIZUMAB
     Indication: Small cell lung cancer extensive stage
     Dosage: DATE OF MOST RECENT DOSE OF ATEZOLIZUMAB PRIOR TO AE ONSET: 25/12/2021
     Route: 041
     Dates: start: 20210923
  2. BEVACIZUMAB [Suspect]
     Active Substance: BEVACIZUMAB
     Indication: Small cell lung cancer extensive stage
     Dosage: DATE OF MOST RECENT DOSE OF BEVACIZUMAB/PLACEBO PRIOR TO AE ONSET: 25/12/2021, 26/01/2022.
     Route: 065
     Dates: start: 20210923
  3. CARBOPLATIN [Suspect]
     Active Substance: CARBOPLATIN
     Indication: Small cell lung cancer extensive stage
     Dosage: DATE OF MOST RECENT DOSE OF CARBOPLATIN PRIOR TO AE ONSET: 30/11/2021
     Route: 042
     Dates: start: 20210923
  4. ETOPOSIDE [Suspect]
     Active Substance: ETOPOSIDE
     Indication: Small cell lung cancer extensive stage
     Dosage: MOST RECENT DOSE PRIOR TO SAE 02/12/2021
     Route: 042
     Dates: start: 20210923
  5. METOCLOPRAMIDE DIHYDROCHLORIDE [Concomitant]
     Route: 048
     Dates: start: 20210916, end: 20210916
  6. CIMETIDINE [Concomitant]
     Active Substance: CIMETIDINE
  7. PANTOPRAZOLE SODIUM [Concomitant]
     Active Substance: PANTOPRAZOLE SODIUM
  8. GLUTATHIONE [Concomitant]
     Active Substance: GLUTATHIONE
     Route: 042
     Dates: start: 20210923, end: 20210925
  9. SODIUM BICARBONATE [Concomitant]
     Active Substance: SODIUM BICARBONATE
  10. TORSEMIDE [Concomitant]
     Active Substance: TORSEMIDE
     Dates: start: 20210923, end: 20210924
  11. VITAMIN B6 [Concomitant]
     Active Substance: PYRIDOXINE HYDROCHLORIDE
     Dates: start: 20210925, end: 20210925
  12. TROPISETRON HYDROCHLORIDE [Concomitant]
     Active Substance: TROPISETRON HYDROCHLORIDE
     Route: 042
     Dates: start: 20210925, end: 20210925
  13. ACETAMINOPHEN\DIHYDROCODEINE BITARTRATE [Concomitant]
     Active Substance: ACETAMINOPHEN\DIHYDROCODEINE BITARTRATE
  14. ONDANSETRON HYDROCHLORIDE [Concomitant]
     Active Substance: ONDANSETRON HYDROCHLORIDE
     Route: 048
     Dates: start: 20210925, end: 20210925
  15. LACTULOSE [Concomitant]
     Active Substance: LACTULOSE
     Route: 048
  16. RECOMBINANT HUMAN GRANULOCYTE COLONY-STIMULATING FACTOR INJECTION---E. [Concomitant]
  17. LEUCOGEN [Concomitant]
     Active Substance: LEUCOGEN
  18. OLANZAPINE [Concomitant]
     Active Substance: OLANZAPINE
     Route: 048
     Dates: start: 20211018, end: 20211018
  19. FU FANG ZAO FAN WAN [Concomitant]
     Route: 048
     Dates: start: 20211016, end: 20211016
  20. IBANDRONATE SODIUM [Concomitant]
     Active Substance: IBANDRONATE SODIUM
  21. OPRELVEKIN [Concomitant]
     Active Substance: OPRELVEKIN
     Route: 058
     Dates: start: 20211214, end: 20211216
  22. MAGNESIUM ISOGLYCYRRHIZINATE [Concomitant]
     Active Substance: MAGNESIUM ISOGLYCYRRHIZINATE
     Route: 042
     Dates: start: 20211024, end: 20211025
  23. GLUTATHIONE [Concomitant]
     Active Substance: GLUTATHIONE
     Route: 048
     Dates: start: 20211226, end: 20220107
  24. MYCOPHENOLATE MOFETIL [Concomitant]
     Active Substance: MYCOPHENOLATE MOFETIL
     Route: 048
     Dates: start: 20220214
  25. URSODIOL [Concomitant]
     Active Substance: URSODIOL
     Route: 048
     Dates: start: 20220214
  26. VITAMIN C [Concomitant]
     Active Substance: ASCORBIC ACID
     Route: 042
     Dates: start: 20220210
  27. HUMAN IMMUNOGLOBULIN(PH4) [Concomitant]
     Route: 042
     Dates: start: 20220215, end: 20220216
  28. URSODIOL [Concomitant]
     Active Substance: URSODIOL
  29. CALCIUM CARBONATE [Concomitant]
     Active Substance: CALCIUM CARBONATE
     Route: 048
     Dates: start: 20220211
  30. METHYLPREDNISOLONE SODIUM SUCCINATE [Concomitant]
     Active Substance: METHYLPREDNISOLONE SODIUM SUCCINATE
     Dates: start: 20220220
  31. DIPHENHYDRAMINE HYDROCHLORIDE [Concomitant]
     Active Substance: DIPHENHYDRAMINE HYDROCHLORIDE
     Route: 030
     Dates: start: 20210923, end: 20210924
  32. PALONOSETRON HYDROCHLORIDE [Concomitant]
     Active Substance: PALONOSETRON HYDROCHLORIDE
     Route: 030
     Dates: start: 20210923, end: 20210923

REACTIONS (1)
  - Hepatitis [Not Recovered/Not Resolved]

NARRATIVE: CASE EVENT DATE: 20211224
